APPROVED DRUG PRODUCT: ACYCLOVIR
Active Ingredient: ACYCLOVIR
Strength: 5%
Dosage Form/Route: OINTMENT;TOPICAL
Application: A210774 | Product #001
Applicant: APOTEX INC
Approved: Sep 6, 2019 | RLD: No | RS: No | Type: DISCN